FAERS Safety Report 21031560 (Version 7)
Quarter: 2024Q3

REPORT INFORMATION
  Report Type: Report from Study
  Country: DE (occurrence: DE)
  Receive Date: 20220701
  Receipt Date: 20240731
  Transmission Date: 20241017
  Serious: Yes (Hospitalization, Other)
  Sender: ROCHE
  Company Number: DE-ROCHE-2468265

PATIENT
  Age: 54 Year
  Sex: Female

DRUGS (12)
  1. OCREVUS [Suspect]
     Active Substance: OCRELIZUMAB
     Indication: Relapsing-remitting multiple sclerosis
     Dosage: NEXT SUBSEQUENT DOSE: 29/OCT/2019
     Route: 042
     Dates: start: 20191015
  2. OCREVUS [Suspect]
     Active Substance: OCRELIZUMAB
     Dosage: SUBSEQUENT DOSES OF OCRELIZUMAB: 25/NOV/2020, 26/MAY/2021, 24/NOV/2021
     Route: 042
     Dates: start: 20200429
  3. OCREVUS [Suspect]
     Active Substance: OCRELIZUMAB
     Route: 042
  4. BUDESONIDE [Suspect]
     Active Substance: BUDESONIDE
     Indication: Colitis microscopic
     Route: 065
     Dates: end: 20200202
  5. BUDESONIDE [Suspect]
     Active Substance: BUDESONIDE
     Route: 065
  6. NABIXIMOLS [Concomitant]
     Active Substance: NABIXIMOLS
  7. BACLOFEN [Concomitant]
     Active Substance: BACLOFEN
  8. PANTOPRAZOLE [Concomitant]
     Active Substance: PANTOPRAZOLE
  9. METAMIZOLE [Concomitant]
     Active Substance: METAMIZOLE
  10. VIGANTOL [Concomitant]
  11. ACETAMINOPHEN [Concomitant]
     Active Substance: ACETAMINOPHEN
  12. IBUPROFEN [Concomitant]
     Active Substance: IBUPROFEN

REACTIONS (45)
  - Fatigue [Recovered/Resolved]
  - Dysphagia [Recovered/Resolved]
  - Nausea [Recovered/Resolved]
  - Pruritus [Recovered/Resolved]
  - Burning sensation [Recovered/Resolved]
  - Colitis microscopic [Recovering/Resolving]
  - Chills [Recovered/Resolved]
  - Acne [Recovered/Resolved]
  - Erythema [Recovered/Resolved]
  - Hyperkeratosis [Recovered/Resolved]
  - Abdominal pain upper [Recovering/Resolving]
  - Diarrhoea [Not Recovered/Not Resolved]
  - Rectal haemorrhage [Recovered/Resolved]
  - Muscle spasticity [Not Recovered/Not Resolved]
  - Road traffic accident [Unknown]
  - Post-traumatic neck syndrome [Recovered/Resolved]
  - Myalgia [Recovered/Resolved]
  - Arthropod bite [Not Recovered/Not Resolved]
  - Fall [Unknown]
  - Device loosening [Not Recovered/Not Resolved]
  - Lymphocyte count decreased [Not Recovered/Not Resolved]
  - Chills [Recovered/Resolved]
  - Nausea [Recovered/Resolved]
  - Fatigue [Recovered/Resolved]
  - Pruritus [Recovered/Resolved]
  - Arthralgia [Not Recovered/Not Resolved]
  - Joint swelling [Not Recovered/Not Resolved]
  - Avulsion fracture [Not Recovered/Not Resolved]
  - Ligament rupture [Not Recovered/Not Resolved]
  - Procedural pain [Recovered/Resolved]
  - Increased upper airway secretion [Recovered/Resolved]
  - Hypersensitivity [Recovering/Resolving]
  - Haematoma [Recovering/Resolving]
  - Malaise [Recovered/Resolved]
  - Depression [Recovered/Resolved]
  - Asthenia [Recovered/Resolved]
  - Gastrointestinal pain [Recovering/Resolving]
  - Dizziness [Recovered/Resolved]
  - Muscular weakness [Recovered/Resolved]
  - COVID-19 [Recovered/Resolved]
  - Pneumonia [Recovered/Resolved]
  - Pain in extremity [Recovered/Resolved]
  - Hiatus hernia [Recovering/Resolving]
  - Vaginal haemorrhage [Not Recovered/Not Resolved]
  - Pain [Recovered/Resolved]

NARRATIVE: CASE EVENT DATE: 20191015
